FAERS Safety Report 9303016 (Version 1)
Quarter: 2013Q2

REPORT INFORMATION
  Report Type: Spontaneous
  Country: DE (occurrence: DE)
  Receive Date: 20130522
  Receipt Date: 20130522
  Transmission Date: 20140414
  Serious: Yes (Other)
  Sender: FDA-Public Use
  Company Number: DE-BRISTOL-MYERS SQUIBB COMPANY-18909788

PATIENT
  Sex: Female

DRUGS (3)
  1. ONGLYZA TABS [Suspect]
  2. METFORMIN [Concomitant]
  3. VITAMIN B [Concomitant]

REACTIONS (1)
  - Accident [Unknown]
